FAERS Safety Report 21960095 (Version 3)
Quarter: 2023Q2

REPORT INFORMATION
  Report Type: Spontaneous
  Country: US (occurrence: US)
  Receive Date: 20230207
  Receipt Date: 20230628
  Transmission Date: 20230721
  Serious: Yes (Hospitalization, Other)
  Sender: FDA-Public Use
  Company Number: US-BIOGEN-2023BI01185792

PATIENT
  Age: 70 Year
  Sex: Male
  Weight: 93.07 kg

DRUGS (13)
  1. TYSABRI [Suspect]
     Active Substance: NATALIZUMAB
     Indication: Multiple sclerosis
     Route: 050
     Dates: start: 2011
  2. TYSABRI [Suspect]
     Active Substance: NATALIZUMAB
     Dosage: 1 PER 36-42 DAYS
     Route: 050
  3. BACLOFEN [Concomitant]
     Active Substance: BACLOFEN
     Indication: Product used for unknown indication
     Route: 050
  4. GABAPENTIN [Concomitant]
     Active Substance: GABAPENTIN
     Indication: Product used for unknown indication
     Dosage: 3 CAPSULES
     Route: 050
  5. IMIPRAMINE [Concomitant]
     Active Substance: IMIPRAMINE
     Indication: Product used for unknown indication
     Dosage: 3 TABLETS DAILY AT BEDTIME
     Route: 050
  6. ONDANSETRON [Concomitant]
     Active Substance: ONDANSETRON
     Indication: Nausea
     Route: 050
  7. ALLOPURINOL [Concomitant]
     Active Substance: ALLOPURINOL
     Indication: Product used for unknown indication
     Dosage: EVERY MORNING
     Route: 050
  8. ASCORBIC ACID [Concomitant]
     Active Substance: ASCORBIC ACID
     Indication: Product used for unknown indication
     Route: 050
  9. BUPRENORPHINE [Concomitant]
     Active Substance: BUPRENORPHINE
     Indication: Product used for unknown indication
     Dosage: 10 MCG/HR TRANSDERMAL FILM, 1 PATCH EVERY SUNDAY
     Route: 050
  10. CHOLECALCIFEROL [Concomitant]
     Active Substance: CHOLECALCIFEROL
     Indication: Product used for unknown indication
     Route: 050
  11. MAGNESIUM OXIDE [Concomitant]
     Active Substance: MAGNESIUM OXIDE
     Indication: Product used for unknown indication
     Route: 050
  12. TYLENOL PM EXTRA STRENGTH [Concomitant]
     Active Substance: ACETAMINOPHEN\DIPHENHYDRAMINE HYDROCHLORIDE
     Indication: Product used for unknown indication
     Dosage: 500-25 MG EVERY NIGHT
     Route: 050
  13. CYANOCOBALAMIN [Concomitant]
     Active Substance: CYANOCOBALAMIN
     Indication: Product used for unknown indication
     Dosage: 100MCG/ML
     Route: 050

REACTIONS (8)
  - Hepatitis acute [Recovered/Resolved]
  - Respiratory failure [Unknown]
  - Acute kidney injury [Unknown]
  - Nephrolithiasis [Unknown]
  - Pneumonia [Unknown]
  - Immunosuppression [Unknown]
  - Abdominal pain upper [Unknown]
  - Prostatomegaly [Unknown]

NARRATIVE: CASE EVENT DATE: 20230101
